FAERS Safety Report 9309171 (Version 1)
Quarter: 2013Q2

REPORT INFORMATION
  Report Type: Spontaneous
  Country: US (occurrence: US)
  Receive Date: 20130525
  Receipt Date: 20130525
  Transmission Date: 20140414
  Serious: Yes (Other)
  Sender: FDA-Public Use
  Company Number: US-BRISTOL-MYERS SQUIBB COMPANY-18577460

PATIENT
  Age: 68 Year
  Sex: Male
  Weight: 79.37 kg

DRUGS (9)
  1. BYDUREON 2MG VIAL + SYRINGE [Suspect]
     Indication: INSULIN-REQUIRING TYPE 2 DIABETES MELLITUS
     Route: 058
     Dates: start: 20121227
  2. BYETTA PEN DISPOSABLE [Suspect]
     Indication: INSULIN-REQUIRING TYPE 2 DIABETES MELLITUS
     Route: 058
     Dates: start: 2009
  3. BYETTA PEN DISPOSABLE [Suspect]
     Indication: INSULIN-REQUIRING TYPE 2 DIABETES MELLITUS
     Route: 058
     Dates: end: 2012
  4. BYETTA PEN DISPOSABLE [Suspect]
     Indication: INSULIN-REQUIRING TYPE 2 DIABETES MELLITUS
     Route: 058
     Dates: start: 2012
  5. EXENATIDE 5MCG PEN, DISPOSABLE DEVICE [Suspect]
  6. EXENATIDE 10MCG PEN, DISPOSABLE DEVICE [Concomitant]
  7. EXENATIDE 5MCG PEN, DISPOSABLE DEVICE [Concomitant]
  8. METFORMIN [Concomitant]
     Indication: TYPE 2 DIABETES MELLITUS
     Route: 048
  9. INSULIN [Concomitant]
     Indication: BLOOD GLUCOSE INCREASED

REACTIONS (3)
  - Atrial fibrillation [Unknown]
  - Blood glucose increased [Not Recovered/Not Resolved]
  - Weight decreased [Unknown]
